FAERS Safety Report 5902875-3 (Version None)
Quarter: 2008Q3

REPORT INFORMATION
  Report Type: 
  Country: None (occurrence: None)
  Receive Date: 20080926
  Receipt Date: 20080911
  Transmission Date: 20090109
  Serious: Yes (Hospitalization)
  Sender: FDA-Public Use
  Company Number: FR-2008-0475

PATIENT
  Age: 69 Year
  Sex: Female

DRUGS (1)
  1. NAVELBINE [Suspect]
     Indication: BREAST CANCER
     Dosage: 40 MG, IV
     Route: 042
     Dates: start: 20080616

REACTIONS (2)
  - BONE DISORDER [None]
  - HYPERCALCAEMIA [None]
